FAERS Safety Report 5585405-8 (Version None)
Quarter: 2008Q1

REPORT INFORMATION
  Report Type: 
  Country: None (occurrence: None)
  Receive Date: 20080109
  Receipt Date: 20071231
  Transmission Date: 20080703
  Serious: Yes (Other)
  Sender: FDA-Public Use
  Company Number: US-GILEAD-2008-0014776

PATIENT
  Sex: Male
  Weight: 86.26 kg

DRUGS (3)
  1. LETAIRIS [Suspect]
     Indication: PULMONARY HYPERTENSION
     Route: 048
     Dates: start: 20070829
  2. REVATIO [Concomitant]
     Indication: PULMONARY HYPERTENSION
     Route: 048
  3. OXYGEN [Concomitant]
     Indication: PULMONARY HYPERTENSION
     Route: 055

REACTIONS (1)
  - PROTHROMBIN TIME ABNORMAL [None]
